FAERS Safety Report 5362966-5 (Version None)
Quarter: 2007Q2

REPORT INFORMATION
  Report Type: 
  Country: None (occurrence: None)
  Receive Date: 20070530
  Receipt Date: 20070328
  Transmission Date: 20071010
  Serious: No
  Sender: FDA-Public Use
  Company Number: 2007PV032552

PATIENT
  Age: 64 Year
  Sex: Male
  Weight: 112.9457 kg

DRUGS (5)
  1. BYETTA [Suspect]
     Indication: DIABETES MELLITUS NON-INSULIN-DEPENDENT
     Dosage: 10 MCG; BID; SC, 5 MCG; BID; SC
     Route: 058
     Dates: start: 20070111, end: 20070201
  2. BYETTA [Suspect]
     Indication: DIABETES MELLITUS NON-INSULIN-DEPENDENT
     Dosage: 10 MCG; BID; SC, 5 MCG; BID; SC
     Route: 058
     Dates: start: 20070201
  3. GLIPIZIDE [Concomitant]
  4. DIOVAN HCT [Concomitant]
  5. DOXAZOSIN MESYLATE [Concomitant]

REACTIONS (5)
  - COUGH [None]
  - DECREASED APPETITE [None]
  - LOWER RESPIRATORY TRACT INFECTION [None]
  - PHARYNGOLARYNGEAL PAIN [None]
  - WEIGHT DECREASED [None]
